FAERS Safety Report 4569000-5 (Version None)
Quarter: 2005Q1

REPORT INFORMATION
  Report Type: 
  Country: None (occurrence: None)
  Receive Date: 20050126
  Receipt Date: 20050126
  Transmission Date: 20050727
  Serious: Yes (Death, Life-Threatening, Hospitalization)
  Sender: FDA-Public Use
  Company Number: None

PATIENT
  Age: 64 Year
  Sex: Male
  Weight: 85 kg

DRUGS (3)
  1. CYTARABINE [Suspect]
     Indication: ACUTE MYELOID LEUKAEMIA
     Dosage: 100 MG/M2 OTHER
     Dates: start: 20041115
  2. DAUNORUBICIN HCL [Suspect]
     Indication: ACUTE MYELOID LEUKAEMIA
     Dosage: 45 MG/M2 OTHER
     Dates: start: 20041115
  3. NEUPOGEN [Concomitant]

REACTIONS (5)
  - BLOOD BILIRUBIN INCREASED [None]
  - PNEUMONIA [None]
  - PULMONARY HAEMORRHAGE [None]
  - SEPSIS [None]
  - THROMBOCYTOPENIA [None]
